FAERS Safety Report 17763770 (Version 1)
Quarter: 2020Q2

REPORT INFORMATION
  Report Type: Spontaneous
  Country: ES (occurrence: ES)
  Receive Date: 20200510
  Receipt Date: 20200510
  Transmission Date: 20200714
  Serious: Yes (Hospitalization, Other)
  Sender: FDA-Public Use
  Company Number: ES-CADILA HEALTHCARE LIMITED-ES-ZYDUS-029910

PATIENT

DRUGS (12)
  1. EUTIROX [Concomitant]
     Active Substance: LEVOTHYROXINE SODIUM
     Dosage: 50 MICROGRAM,1-0-0,(INTERVAL :24 HOURS)
     Route: 048
  2. RISPERDAL [Concomitant]
     Active Substance: RISPERIDONE
     Dosage: 2 MILLIGRAM,(INTERVAL :1 DAYS)
     Route: 048
  3. OMEPRAZOL [Concomitant]
     Active Substance: OMEPRAZOLE
     Dosage: 1 DOSAGE FORM,1-0-0,(INTERVAL :24 HOURS)
     Route: 048
  4. RISPERDAL [Concomitant]
     Active Substance: RISPERIDONE
     Dosage: 3 MILLIGRAM,0-0-1,(INTERVAL :24 HOURS)
     Route: 048
  5. ORFIDAL [Concomitant]
     Active Substance: LORAZEPAM
     Dosage: 1 DOSAGE FORM,1-1-1,(INTERVAL :8 HOURS)
     Route: 048
  6. ADIRON [Concomitant]
     Indication: ACUTE MYOCARDIAL INFARCTION
     Dosage: 100 MILLIGRAM,0-1-0,(INTERVAL :24 HOURS)
     Route: 048
     Dates: start: 201611
  7. PARACETAMOL [Concomitant]
     Active Substance: ACETAMINOPHEN
     Dosage: 1 GRAM,1-1-1,(INTERVAL :8 HOURS)
  8. UNIKET [Concomitant]
     Active Substance: ISOSORBIDE MONONITRATE
     Dosage: 20 MILLIGRAM,1-0-1,(INTERVAL :12 HOURS)
     Route: 048
  9. CLOPIDOGREL [Suspect]
     Active Substance: CLOPIDOGREL BISULFATE
     Indication: ACUTE MYOCARDIAL INFARCTION
     Dosage: 75 MILLIGRAM,0-1-0,(INTERVAL :24 HOURS)
     Dates: start: 201611
  10. FUROSEMIDE. [Suspect]
     Active Substance: FUROSEMIDE
     Indication: CARDIAC FAILURE
     Dosage: 40 MILLIGRAM,(INTERVAL :8 HOURS)
     Route: 048
     Dates: start: 2017
  11. SPIRONOLACTONE. [Suspect]
     Active Substance: SPIRONOLACTONE
     Indication: CARDIAC FAILURE
     Dosage: 25 MILLIGRAM,0-1-0,(INTERVAL :24 HOURS)
     Route: 048
     Dates: start: 20170801, end: 20171113
  12. AKINETON [Concomitant]
     Active Substance: BIPERIDEN HYDROCHLORIDE
     Dosage: 2 MILLIGRAM,1-0-1,(INTERVAL :12 HOURS)
     Route: 048

REACTIONS (1)
  - Acute kidney injury [Recovered/Resolved]

NARRATIVE: CASE EVENT DATE: 201711
